FAERS Safety Report 22210107 (Version 1)
Quarter: 2023Q2

REPORT INFORMATION
  Report Type: Spontaneous
  Country: US (occurrence: US)
  Receive Date: 20230414
  Receipt Date: 20230414
  Transmission Date: 20230721
  Serious: No
  Sender: FDA-Public Use
  Company Number: US-CADILA HEALTHCARE LIMITED-US-ZYDUS-084639

PATIENT

DRUGS (5)
  1. AMITRIPTYLINE [Suspect]
     Active Substance: AMITRIPTYLINE
     Indication: Product used for unknown indication
     Dosage: 25 MILLIGRAM
     Route: 065
     Dates: start: 2022
  2. MYORISAN [Suspect]
     Active Substance: ISOTRETINOIN
     Indication: Acne
     Dosage: , UNK
     Route: 048
     Dates: start: 20220213, end: 202203
  3. MYORISAN [Suspect]
     Active Substance: ISOTRETINOIN
     Dosage: , UNK
     Route: 048
     Dates: start: 202203, end: 202204
  4. MYORISAN [Suspect]
     Active Substance: ISOTRETINOIN
     Dosage: , UNK
     Route: 048
     Dates: start: 202204, end: 20221028
  5. MONTELUKAST [Concomitant]
     Active Substance: MONTELUKAST SODIUM
     Indication: Product used for unknown indication
     Dosage: UNK, UNK
     Route: 065

REACTIONS (1)
  - Hepatic function abnormal [Recovered/Resolved]

NARRATIVE: CASE EVENT DATE: 20220711
